FAERS Safety Report 9456373 (Version 1)
Quarter: 2013Q3

REPORT INFORMATION
  Report Type: Spontaneous
  Country: GB (occurrence: GB)
  Receive Date: 20130813
  Receipt Date: 20130813
  Transmission Date: 20140515
  Serious: Yes (Disabling)
  Sender: FDA-Public Use
  Company Number: GB-ACTAVIS-2013-14226

PATIENT
  Age: 58 Year
  Sex: Female

DRUGS (6)
  1. LETROZOLE (UNKNOWN) [Suspect]
     Indication: BREAST CANCER
     Dosage: 2.5 MG, DAILY FOR 2 DAYS
     Route: 048
     Dates: start: 20130621
  2. SULFASALAZINE [Concomitant]
     Indication: ARTHROPATHY
     Dosage: 2 DF, BID
     Route: 065
     Dates: start: 2010
  3. KLIOVANCE [Concomitant]
     Indication: MENSTRUAL DISORDER
     Dosage: 1 DF, DAILY
     Route: 065
     Dates: start: 2010, end: 20130606
  4. HYDROXYCHLOROQUINE [Concomitant]
     Indication: ARTHROPATHY
     Dosage: 200 MG, DAILY
     Route: 065
     Dates: start: 2011
  5. CELECOXIB [Concomitant]
     Indication: ARTHROPATHY
     Dosage: 200 MG, DAILY
     Route: 065
     Dates: start: 2012
  6. FLUOXETINE [Concomitant]
     Indication: DEPRESSION
     Dosage: 20 MG, DAILY
     Route: 065
     Dates: start: 2011

REACTIONS (5)
  - Hypertension [Unknown]
  - Headache [Unknown]
  - Local swelling [Unknown]
  - Disturbance in attention [Unknown]
  - Irritability [Unknown]
